FAERS Safety Report 9280693 (Version 1)
Quarter: 2013Q2

REPORT INFORMATION
  Report Type: Spontaneous
  Country: US (occurrence: US)
  Receive Date: 20130509
  Receipt Date: 20130509
  Transmission Date: 20140414
  Serious: Yes (Death, Hospitalization, Other)
  Sender: FDA-Public Use
  Company Number: US-PFIZER INC-2013141316

PATIENT
  Age: 79 Year
  Sex: Female

DRUGS (3)
  1. IBUPROFEN [Suspect]
     Indication: PAIN
     Dosage: 800 MG, 2X/DAY
     Route: 048
     Dates: start: 1985, end: 1987
  2. TUMS [Concomitant]
     Indication: DYSPEPSIA
     Dosage: UNK
  3. ALCOHOL [Concomitant]
     Dosage: DAILY

REACTIONS (3)
  - Renal failure chronic [Fatal]
  - Haematuria [Unknown]
  - Dyspepsia [Unknown]
